FAERS Safety Report 14314277 (Version 1)
Quarter: 2017Q4

REPORT INFORMATION
  Report Type: Spontaneous
  Country: TT (occurrence: TT)
  Receive Date: 20171221
  Receipt Date: 20171221
  Transmission Date: 20180321
  Serious: Yes (Hospitalization, Other)
  Sender: FDA-Public Use
  Company Number: TT-MYLANLABS-2017M1077923

PATIENT
  Age: 23 Year
  Sex: Female

DRUGS (1)
  1. NORETHISTERONE [Suspect]
     Active Substance: NORETHINDRONE
     Indication: CONTRACEPTION
     Dosage: DEPOT INJECTIONS EVERY TWO MONTHS FOR TWO YEARS
     Route: 065

REACTIONS (1)
  - Intracranial venous sinus thrombosis [Recovered/Resolved]
